FAERS Safety Report 12380442 (Version 1)
Quarter: 2016Q2

REPORT INFORMATION
  Report Type: Spontaneous
  Country: US (occurrence: US)
  Receive Date: 20160518
  Receipt Date: 20160518
  Transmission Date: 20160815
  Serious: No
  Sender: FDA-Public Use
  Company Number: US-PFIZER INC-2016230255

PATIENT
  Age: 48 Year
  Sex: Female

DRUGS (1)
  1. AMLODIPINE BESILATE [Suspect]
     Active Substance: AMLODIPINE BESYLATE
     Dosage: 5 MG, UNK

REACTIONS (11)
  - Fluid retention [Unknown]
  - Joint swelling [Unknown]
  - Dizziness [Unknown]
  - Fatigue [Unknown]
  - Rash [Unknown]
  - Palpitations [Unknown]
  - Neuropathy peripheral [Unknown]
  - Oedema [Unknown]
  - Headache [Unknown]
  - Flushing [Unknown]
  - Vision blurred [Unknown]
